FAERS Safety Report 9702302 (Version 1)
Quarter: 2013Q4

REPORT INFORMATION
  Report Type: Spontaneous
  Country: GB (occurrence: GB)
  Receive Date: 20131121
  Receipt Date: 20131121
  Transmission Date: 20140711
  Serious: Yes (Other)
  Sender: FDA-Public Use
  Company Number: GB-MYLANLABS-2013S1025488

PATIENT
  Age: 46 Year
  Sex: Female
  Weight: 57.2 kg

DRUGS (4)
  1. CLARITHROMYCIN [Suspect]
     Indication: HELICOBACTER INFECTION
     Route: 048
     Dates: start: 20131020, end: 20131025
  2. METRONIDAZOLE [Concomitant]
     Indication: PRODUCT USED FOR UNKNOWN INDICATION
  3. NEXIUM [Concomitant]
     Indication: PRODUCT USED FOR UNKNOWN INDICATION
  4. THYROXINE [Concomitant]
     Indication: PRODUCT USED FOR UNKNOWN INDICATION

REACTIONS (9)
  - Anxiety [Recovering/Resolving]
  - Chest pain [Recovering/Resolving]
  - Feeling abnormal [Unknown]
  - Hallucination [Recovered/Resolved]
  - Insomnia [Recovered/Resolved]
  - Pain in extremity [Unknown]
  - Muscle twitching [Unknown]
  - Panic attack [Recovering/Resolving]
  - Malaise [Recovering/Resolving]
